FAERS Safety Report 23960320 (Version 2)
Quarter: 2024Q2

REPORT INFORMATION
  Report Type: Spontaneous
  Country: US (occurrence: US)
  Receive Date: 20240611
  Receipt Date: 20240625
  Transmission Date: 20240716
  Serious: Yes (Hospitalization)
  Sender: FDA-Public Use
  Company Number: US-TEVA-VS-3158651

PATIENT
  Age: 77 Year
  Sex: Male

DRUGS (5)
  1. CEFADROXIL [Suspect]
     Active Substance: CEFADROXIL
     Indication: Staphylococcal bacteraemia
     Route: 048
  2. GENTAMICIN [Concomitant]
     Active Substance: GENTAMICIN
     Indication: Staphylococcal bacteraemia
     Dosage: 1MG/KG EVERY 12HOUR
     Route: 042
  3. OXACILLIN [Suspect]
     Active Substance: OXACILLIN SODIUM
     Indication: Staphylococcal bacteraemia
     Dosage: 2G EVERY FOUR HOURS
     Route: 042
  4. CEFAZOLIN [Concomitant]
     Active Substance: CEFAZOLIN
     Indication: Staphylococcal bacteraemia
     Dosage: 2G EVERY 8HOUR
     Route: 042
  5. VANCOMYCIN [Concomitant]
     Active Substance: VANCOMYCIN
     Indication: Evidence based treatment
     Dosage: 15MG/KG EVERY 24 HOURS
     Route: 042

REACTIONS (2)
  - Gastrointestinal disorder [Unknown]
  - Drug resistance [Unknown]
